FAERS Safety Report 9963324 (Version 1)
Quarter: 2014Q1

REPORT INFORMATION
  Report Type: Report from Study
  Country: US (occurrence: US)
  Receive Date: 20140305
  Receipt Date: 20140305
  Transmission Date: 20141002
  Serious: No
  Sender: FDA-Public Use
  Company Number: US-ABBVIE-13P-163-1119552-00

PATIENT
  Age: 53 Year
  Sex: Female

DRUGS (14)
  1. HUMIRA [Suspect]
     Indication: COLITIS ULCERATIVE
     Dates: start: 20130404
  2. INSTAFLEX [Concomitant]
     Indication: MOBILITY DECREASED
  3. INSTAFLEX [Concomitant]
     Indication: ARTHROPATHY
  4. ASHWAGANDHA [Concomitant]
     Indication: STRESS
  5. KYOLIC AGED GARLIC EXTRACT AND CURCUMIN [Concomitant]
     Indication: INFLAMMATORY BOWEL DISEASE
  6. OMEGA XL [Concomitant]
     Indication: SUPPLEMENTATION THERAPY
  7. VSL#3 [Concomitant]
     Indication: COLITIS ULCERATIVE
  8. VITAMIN D NOS [Concomitant]
     Indication: PRODUCT USED FOR UNKNOWN INDICATION
  9. VITAMIN B12 W/VITAMIN B6/FOLIC ACID [Concomitant]
     Indication: PRODUCT USED FOR UNKNOWN INDICATION
  10. CALCIUM WITH VITAMIN D GUMMY CHEWS [Concomitant]
     Indication: PRODUCT USED FOR UNKNOWN INDICATION
  11. IRON [Concomitant]
     Indication: PRODUCT USED FOR UNKNOWN INDICATION
  12. TROPICAL PAPAYA [Concomitant]
     Indication: ENZYME SUPPLEMENTATION
     Dosage: 4 CHEWS AFTER MEALS
  13. UBIQUINOL [Concomitant]
     Indication: SUPPLEMENTATION THERAPY
  14. KRILL OMEGA RED OIL [Concomitant]
     Indication: SUPPLEMENTATION THERAPY

REACTIONS (8)
  - Arthralgia [Recovering/Resolving]
  - Pain in extremity [Recovering/Resolving]
  - Arthralgia [Recovering/Resolving]
  - Diarrhoea [Not Recovered/Not Resolved]
  - Movement disorder [Not Recovered/Not Resolved]
  - Oropharyngeal pain [Not Recovered/Not Resolved]
  - Upper-airway cough syndrome [Not Recovered/Not Resolved]
  - Drug ineffective [Not Recovered/Not Resolved]
